FAERS Safety Report 10798526 (Version 3)
Quarter: 2015Q1

REPORT INFORMATION
  Report Type: Spontaneous
  Country: JP (occurrence: JP)
  Receive Date: 20150216
  Receipt Date: 20150330
  Transmission Date: 20150721
  Serious: Yes (Death, Life-Threatening)
  Sender: FDA-Public Use
  Company Number: JP-009507513-1502JPN007002

PATIENT
  Age: 88 Year
  Sex: Male
  Weight: 50 kg

DRUGS (10)
  1. AVELOX [Concomitant]
     Active Substance: MOXIFLOXACIN HYDROCHLORIDE
     Dosage: 200 MG, QD
     Route: 048
  2. BIO-THREE [Concomitant]
     Active Substance: HERBALS
     Dosage: 0.5 G, TID
     Route: 048
     Dates: end: 20150208
  3. ZYPREXA [Concomitant]
     Active Substance: OLANZAPINE
     Indication: INSOMNIA
     Dosage: 5 MG, QD
     Route: 048
     Dates: end: 20150204
  4. BELSOMRA [Suspect]
     Active Substance: SUVOREXANT
     Indication: INSOMNIA
     Dosage: 15 MG, QD
     Route: 048
     Dates: start: 20150205, end: 20150208
  5. MOHRUS [Concomitant]
     Active Substance: KETOPROFEN
     Dosage: 20 MG, QD, PART: LOWER LIMBS
     Route: 062
  6. LUPRAC [Concomitant]
     Active Substance: TORSEMIDE
     Indication: CARDIAC FAILURE
     Dosage: 8 MG,FORMULATION^POR^
     Route: 048
     Dates: end: 20150208
  7. HOKUNALIN [Concomitant]
     Active Substance: TULOBUTEROL
     Indication: BRONCHIAL DISORDER
     Dosage: 2 MG, QD, PART: CHEST
     Route: 062
     Dates: end: 20150208
  8. HYPEN [Concomitant]
     Active Substance: ETODOLAC
     Indication: BONE PAIN
     Dosage: 200 MG, BID
     Route: 048
     Dates: start: 20150205, end: 20150208
  9. BISOPROLOL [Concomitant]
     Active Substance: BISOPROLOL
     Indication: HYPERTENSION
     Dosage: 4 MG, UNK, PART: CHEST
     Route: 062
     Dates: end: 20150208
  10. SODIUM PICOSULFATE [Concomitant]
     Active Substance: SODIUM PICOSULFATE
     Dosage: 10-20 DROPS AT CONSTIPATION, FORMULATION- SOL
     Route: 048

REACTIONS (2)
  - Cardiac failure chronic [Fatal]
  - Eating disorder [Fatal]

NARRATIVE: CASE EVENT DATE: 20150208
